FAERS Safety Report 5163685-0 (Version None)
Quarter: 2006Q4

REPORT INFORMATION
  Report Type: 
  Country: None (occurrence: None)
  Receive Date: 20061204
  Receipt Date: 20010216
  Transmission Date: 20070319
  Serious: Yes (Hospitalization)
  Sender: FDA-Public Use
  Company Number: FR-GLAXOSMITHKLINE-B0099302A

PATIENT
  Sex: Female
  Weight: 1 kg

DRUGS (8)
  1. RETROVIR [Suspect]
     Route: 042
     Dates: start: 20010119
  2. RETROVIR [Suspect]
     Route: 048
  3. EPIVIR [Suspect]
     Route: 048
  4. LOXEN [Concomitant]
  5. AUGMENTIN '125' [Concomitant]
     Route: 065
  6. NETROMYCINE [Concomitant]
  7. CELESTENE [Concomitant]
  8. SALBUTAMOL [Concomitant]

REACTIONS (6)
  - ANAEMIA [None]
  - BACTERIAL INFECTION [None]
  - DRUG EXPOSURE DURING PREGNANCY [None]
  - DRUG LEVEL INCREASED [None]
  - RESPIRATORY DISTRESS [None]
  - SMALL FOR DATES BABY [None]
